FAERS Safety Report 4718094-2 (Version None)
Quarter: 2005Q3

REPORT INFORMATION
  Report Type: 
  Country: None (occurrence: None)
  Receive Date: 20050718
  Receipt Date: 20050401
  Transmission Date: 20060218
  Serious: No
  Sender: FDA-Public Use
  Company Number: 2005000654

PATIENT
  Age: 87 Year
  Sex: Male

DRUGS (8)
  1. TARCEVA [Suspect]
     Indication: NON-SMALL CELL LUNG CANCER
     Dosage: 150 MG (QD), ORAL
     Route: 048
     Dates: start: 20050128, end: 20050203
  2. COMBIVENT [Concomitant]
  3. ALENDRONATE SODIUM [Concomitant]
  4. DIPHENHYDRAMINE HCL [Concomitant]
  5. HYDROCODONE (HYDROCODONE) [Concomitant]
  6. LEVOTHYROXINE SODIUM [Concomitant]
  7. OMEPRAZOLE [Concomitant]
  8. SENNA (SENNA) [Concomitant]

REACTIONS (3)
  - GLOSSITIS [None]
  - RASH [None]
  - TONGUE DISORDER [None]
